FAERS Safety Report 5211961-5 (Version None)
Quarter: 2007Q1

REPORT INFORMATION
  Report Type: 
  Country: None (occurrence: None)
  Receive Date: 20070118
  Receipt Date: 20070118
  Transmission Date: 20070707
  Serious: Yes (Other)
  Sender: FDA-Public Use
  Company Number: US-GLAXOSMITHKLINE-A0635958A

PATIENT
  Age: 34 Year
  Sex: Female

DRUGS (4)
  1. EQUATE NTS 21MG [Suspect]
     Indication: SMOKING CESSATION THERAPY
     Dosage: 21MG UNKNOWN
     Route: 062
     Dates: start: 20070111, end: 20070113
  2. DILANTIN [Suspect]
     Indication: EPILEPSY
     Route: 065
  3. UNSPECIFIED MEDICATIONS [Concomitant]
  4. PROZAC [Concomitant]

REACTIONS (3)
  - CONVULSION [None]
  - DRUG INTERACTION [None]
  - DRUG LEVEL DECREASED [None]
